FAERS Safety Report 15290841 (Version 1)
Quarter: 2018Q4

REPORT INFORMATION
  Report Type: Spontaneous
  Country: FR (occurrence: FR)
  Receive Date: 20180817
  Receipt Date: 20180817
  Transmission Date: 20190204
  Serious: Yes (Other)
  Sender: FDA-Public Use
  Company Number: FR-TEVA-2018-FR-941721

PATIENT
  Age: 55 Year
  Sex: Male

DRUGS (10)
  1. ADVAGRAF [Suspect]
     Active Substance: TACROLIMUS
     Indication: PROPHYLAXIS AGAINST TRANSPLANT REJECTION
     Dosage: 3 MILLIGRAM DAILY;
     Route: 048
     Dates: start: 20180705
  2. CELLCEPT [Concomitant]
     Active Substance: MYCOPHENOLATE MOFETIL\MYCOPHENOLATE MOFETIL HYDROCHLORIDE
  3. PANTOPRAZOLE [Concomitant]
     Active Substance: PANTOPRAZOLE
  4. ORBENINE 500 MG, G?LULE [Suspect]
     Active Substance: CLOXACILLIN SODIUM
     Indication: ARTHRITIS INFECTIVE
     Dosage: 12 MILLIGRAM DAILY;
     Route: 048
     Dates: start: 20180623
  5. CHLORHYDRATE D^OXYCODONE [Concomitant]
  6. OFLOXACINE [Suspect]
     Active Substance: OFLOXACIN
     Indication: ARTHRITIS INFECTIVE
     Dosage: 300 MILLIGRAM DAILY;
     Route: 048
     Dates: start: 20180702, end: 20180709
  7. GAVISCON [Concomitant]
     Active Substance: ALUMINUM HYDROXIDE\MAGNESIUM CARBONATE
  8. XATRAL [Concomitant]
     Active Substance: ALFUZOSIN
  9. SMECTA [Concomitant]
     Active Substance: MONTMORILLONITE
  10. LOVENOX [Concomitant]
     Active Substance: ENOXAPARIN SODIUM

REACTIONS (2)
  - Confusional state [Not Recovered/Not Resolved]
  - Thrombocytopenia [Not Recovered/Not Resolved]

NARRATIVE: CASE EVENT DATE: 20180709
